FAERS Safety Report 7281648-6 (Version None)
Quarter: 2011Q1

REPORT INFORMATION
  Report Type: 
  Country: None (occurrence: None)
  Receive Date: 20110208
  Receipt Date: 20110128
  Transmission Date: 20110831
  Serious: Yes (Congenital Anomaly, Other)
  Sender: FDA-Public Use
  Company Number: FR-ELI_LILLY_AND_COMPANY-FR201009008076

PATIENT

DRUGS (3)
  1. ZYPREXA [Suspect]
     Dosage: 5 MG, DAILY (1/D)
     Route: 064
     Dates: start: 20100504, end: 20100716
  2. DEPAKOTE [Concomitant]
     Dosage: 500 MG, DAILY (1/D)
     Route: 064
     Dates: start: 20100504, end: 20100716
  3. TERALITHE [Concomitant]
     Dosage: 400 MG, 2/D
     Route: 064
     Dates: start: 20100504, end: 20100716

REACTIONS (6)
  - DYSMORPHISM [None]
  - HYGROMA COLLI [None]
  - GENERALISED OEDEMA [None]
  - CONGENITAL CYSTIC KIDNEY DISEASE [None]
  - KIDNEY ENLARGEMENT [None]
  - DRUG EXPOSURE DURING PREGNANCY [None]
